FAERS Safety Report 23595054 (Version 2)
Quarter: 2024Q1

REPORT INFORMATION
  Report Type: Spontaneous
  Country: CA (occurrence: CA)
  Receive Date: 20240305
  Receipt Date: 20240320
  Transmission Date: 20240409
  Serious: Yes (Other)
  Sender: FDA-Public Use
  Company Number: CA-SUN PHARMACEUTICAL INDUSTRIES LTD-2024R1-434300

PATIENT
  Age: 69 Year
  Sex: Female

DRUGS (2)
  1. ACETAMINOPHEN [Suspect]
     Active Substance: ACETAMINOPHEN
     Indication: Pain
     Dosage: 650 MILLIGRAM, QID
     Route: 048
  2. DIAZEPAM [Concomitant]
     Active Substance: DIAZEPAM
     Indication: Alcohol withdrawal syndrome
     Route: 065

REACTIONS (5)
  - Hepatotoxicity [Unknown]
  - Liver injury [Recovering/Resolving]
  - Acute kidney injury [Recovering/Resolving]
  - Toxicity to various agents [Unknown]
  - Hypoglycaemia [Unknown]
